FAERS Safety Report 8081476-8 (Version None)
Quarter: 2012Q1

REPORT INFORMATION
  Report Type: 
  Country: None (occurrence: None)
  Receive Date: 20120130
  Receipt Date: 20120123
  Transmission Date: 20120608
  Serious: Yes (Other)
  Sender: FDA-Public Use
  Company Number: PHHY2012IN006082

PATIENT
  Age: 74 Year
  Sex: Male

DRUGS (1)
  1. CARBAMAZEPINE [Suspect]
     Indication: PARTIAL SEIZURES

REACTIONS (12)
  - RASH ERYTHEMATOUS [None]
  - PYREXIA [None]
  - CHILLS [None]
  - SOMNOLENCE [None]
  - RASH MACULO-PAPULAR [None]
  - SKIN EXFOLIATION [None]
  - OEDEMA PERIPHERAL [None]
  - RASH MORBILLIFORM [None]
  - LEUKOCYTOSIS [None]
  - RASH PRURITIC [None]
  - RENAL DISORDER [None]
  - ORAL DISORDER [None]
